FAERS Safety Report 9708101 (Version 1)
Quarter: 2013Q4

REPORT INFORMATION
  Report Type: Spontaneous
  Country: JP (occurrence: JP)
  Receive Date: 20131125
  Receipt Date: 20131125
  Transmission Date: 20140711
  Serious: Yes (Other)
  Sender: FDA-Public Use
  Company Number: JP-009507513-1311JPN009326

PATIENT
  Sex: 0

DRUGS (1)
  1. PEGINTRON [Suspect]
     Dosage: DAILY DOSAGE UNKNOWN
     Route: 058
     Dates: start: 201304

REACTIONS (4)
  - Skin necrosis [Unknown]
  - Skin ulcer [Unknown]
  - Injection site inflammation [Unknown]
  - Injection site induration [Unknown]
